FAERS Safety Report 13689282 (Version 1)
Quarter: 2017Q2

REPORT INFORMATION
  Report Type: Spontaneous
  Country: US (occurrence: US)
  Receive Date: 20170625
  Receipt Date: 20170625
  Transmission Date: 20170830
  Serious: Yes (Life-Threatening, Disabling)
  Sender: FDA-Public Use
  Company Number: None

PATIENT
  Age: 29 Year
  Sex: Female
  Weight: 56.25 kg

DRUGS (1)
  1. CLONAZEPAM. [Suspect]
     Active Substance: CLONAZEPAM
     Indication: INSOMNIA
     Dosage: ?          OTHER STRENGTH:MG;QUANTITY:1 TABLET(S);?
     Route: 048

REACTIONS (13)
  - Withdrawal syndrome [None]
  - Delusion [None]
  - Hallucination, auditory [None]
  - Derealisation [None]
  - Vertigo [None]
  - Depression [None]
  - Suicidal ideation [None]
  - Dizziness [None]
  - Panic attack [None]
  - Insomnia [None]
  - Hallucination [None]
  - Neuralgia [None]
  - Tremor [None]

NARRATIVE: CASE EVENT DATE: 20110130
